FAERS Safety Report 12824000 (Version 1)
Quarter: 2016Q4

REPORT INFORMATION
  Report Type: Spontaneous
  Country: US (occurrence: US)
  Receive Date: 20161006
  Receipt Date: 20161006
  Transmission Date: 20170207
  Serious: Yes (Disabling)
  Sender: FDA-Public Use
  Company Number: None

PATIENT
  Age: 63 Year
  Sex: Female
  Weight: 74.25 kg

DRUGS (7)
  1. BENDAMUSTINE [Suspect]
     Active Substance: BENDAMUSTINE
     Indication: B-CELL SMALL LYMPHOCYTIC LYMPHOMA
     Dosage: ?          OTHER FREQUENCY:4 CYCLES OF BR;?
     Route: 042
     Dates: start: 20150420, end: 20150730
  2. OMEOPRAMEZOL (PROTON PUMP INHIBITOR) [Concomitant]
  3. VITAMIN D [Concomitant]
     Active Substance: CHOLECALCIFEROL
  4. LEXAPRO [Concomitant]
     Active Substance: ESCITALOPRAM OXALATE
  5. LEVOTHYROXINE. [Concomitant]
     Active Substance: LEVOTHYROXINE
  6. VITAMIN B [Concomitant]
     Active Substance: VITAMIN B
  7. RITUXIMAB [Suspect]
     Active Substance: RITUXIMAB
     Indication: B-CELL SMALL LYMPHOCYTIC LYMPHOMA
     Route: 042
     Dates: start: 20150420, end: 20150730

REACTIONS (7)
  - Economic problem [None]
  - Emotional distress [None]
  - Neutropenia [None]
  - Impaired work ability [None]
  - Disease progression [None]
  - Upper respiratory tract infection [None]
  - Bone marrow disorder [None]

NARRATIVE: CASE EVENT DATE: 20160215
